FAERS Safety Report 5892851-1 (Version None)
Quarter: 2008Q3

REPORT INFORMATION
  Report Type: 
  Country: None (occurrence: None)
  Receive Date: 20080923
  Receipt Date: 20080521
  Transmission Date: 20090109
  Serious: No
  Sender: FDA-Public Use
  Company Number: US-BAYER-200824928NA

PATIENT
  Age: 41 Year
  Sex: Female
  Weight: 147 kg

DRUGS (5)
  1. YASMIN [Suspect]
     Indication: CONTRACEPTION
     Route: 048
     Dates: start: 20080402, end: 20080419
  2. PROVIGIL [Suspect]
     Indication: NARCOLEPSY
     Dates: start: 19990101
  3. CLARITIN [Concomitant]
     Indication: DRUG USE FOR UNKNOWN INDICATION
  4. NICOMIDE [Concomitant]
     Indication: DRUG USE FOR UNKNOWN INDICATION
  5. MULTIVITAMIN NOS [Concomitant]
     Indication: SUPPLEMENTATION THERAPY

REACTIONS (2)
  - RASH PAPULAR [None]
  - ROSACEA [None]
